FAERS Safety Report 4433931-7 (Version None)
Quarter: 2004Q3

REPORT INFORMATION
  Report Type: 
  Country: None (occurrence: None)
  Receive Date: 20040825
  Receipt Date: 20040825
  Transmission Date: 20050211
  Serious: Yes (Life-Threatening, Hospitalization)
  Sender: FDA-Public Use
  Company Number: None

PATIENT
  Age: 62 Year
  Sex: Male

DRUGS (1)
  1. ERBITUX [Suspect]
     Indication: CARCINOMA
     Dosage: IV
     Route: 042
     Dates: start: 20040804, end: 20040804

REACTIONS (3)
  - COMA [None]
  - DYSPNOEA [None]
  - RESPIRATORY RATE DECREASED [None]
